FAERS Safety Report 8443338-3 (Version None)
Quarter: 2012Q2

REPORT INFORMATION
  Report Type: 
  Country: None (occurrence: None)
  Receive Date: 20120618
  Receipt Date: 20120608
  Transmission Date: 20120825
  Serious: Yes (Hospitalization)
  Sender: FDA-Public Use
  Company Number: JP-BRISTOL-MYERS SQUIBB COMPANY-16680423

PATIENT
  Age: 76 Year
  Sex: Female

DRUGS (3)
  1. GLIMEPIRIDE [Concomitant]
     Route: 048
  2. MIGLITOL [Concomitant]
     Route: 048
  3. METFORMIN HCL [Suspect]
     Indication: DIABETES MELLITUS
     Route: 048

REACTIONS (4)
  - BLOOD GLUCOSE INCREASED [None]
  - KIDNEY ENLARGEMENT [None]
  - METABOLIC ACIDOSIS [None]
  - URINARY RETENTION [None]
